FAERS Safety Report 16915317 (Version 1)
Quarter: 2019Q4

REPORT INFORMATION
  Report Type: Spontaneous
  Country: US (occurrence: US)
  Receive Date: 20191014
  Receipt Date: 20191014
  Transmission Date: 20200122
  Serious: No
  Sender: FDA-Public Use
  Company Number: US-PFIZER INC-2019441671

PATIENT
  Age: 66 Year
  Sex: Female

DRUGS (1)
  1. LATANOPROST. [Suspect]
     Active Substance: LATANOPROST
     Dosage: UNK

REACTIONS (5)
  - Eyelids pruritus [Unknown]
  - Vision blurred [Unknown]
  - Lacrimation increased [Unknown]
  - Drug hypersensitivity [Unknown]
  - Erythema of eyelid [Unknown]
